FAERS Safety Report 9206973 (Version 1)
Quarter: 2013Q2

REPORT INFORMATION
  Report Type: Spontaneous
  Country: US (occurrence: None)
  Receive Date: 20130402
  Receipt Date: 20130402
  Transmission Date: 20140414
  Serious: Yes (Hospitalization)
  Sender: FDA-Public Use
  Company Number: None

PATIENT
  Age: 62 Year
  Sex: Female
  Weight: 100.5 kg

DRUGS (1)
  1. ALFA2 INTERFERON 2B (INTRON-A) 1342 MG [Suspect]
     Dosage: 368.6 MILLION IU
     Dates: end: 20121203

REACTIONS (2)
  - Bone pain [None]
  - Pulmonary mass [None]
